FAERS Safety Report 9669040 (Version 1)
Quarter: 2013Q4

REPORT INFORMATION
  Report Type: Spontaneous
  Country: US (occurrence: US)
  Receive Date: 20131105
  Receipt Date: 20131105
  Transmission Date: 20140711
  Serious: No
  Sender: FDA-Public Use
  Company Number: US-PFIZER INC-2013314157

PATIENT
  Age: 61 Year
  Sex: Female
  Weight: 66.67 kg

DRUGS (3)
  1. CHANTIX [Suspect]
     Indication: SMOKING CESSATION THERAPY
     Dosage: 0.5 MG, 1X/DAY
     Route: 048
     Dates: start: 201309
  2. CHANTIX [Suspect]
     Dosage: UNK
     Route: 048
     Dates: end: 2013
  3. TRAMADOL [Concomitant]
     Indication: BACK PAIN
     Dosage: UNK

REACTIONS (1)
  - Abnormal dreams [Recovered/Resolved]
